FAERS Safety Report 17923045 (Version 1)
Quarter: 2020Q2

REPORT INFORMATION
  Report Type: Spontaneous
  Country: US (occurrence: US)
  Receive Date: 20200621
  Receipt Date: 20200621
  Transmission Date: 20200714
  Serious: No
  Sender: FDA-Public Use
  Company Number: None

PATIENT
  Sex: Female

DRUGS (1)
  1. HUMIRA [Suspect]
     Active Substance: ADALIMUMAB
     Indication: ANTIBODY TEST
     Route: 058
     Dates: start: 201909

REACTIONS (5)
  - Loss of personal independence in daily activities [None]
  - Device issue [None]
  - Joint swelling [None]
  - Arthralgia [None]
  - Pain [None]
